FAERS Safety Report 8350007-7 (Version None)
Quarter: 2012Q2

REPORT INFORMATION
  Report Type: 
  Country: None (occurrence: None)
  Receive Date: 20120510
  Receipt Date: 20120502
  Transmission Date: 20120825
  Serious: No
  Sender: FDA-Public Use
  Company Number: BR-ABBOTT-12P-020-0929814-00

PATIENT
  Sex: Female
  Weight: 70 kg

DRUGS (3)
  1. DEPAKOTE [Suspect]
     Indication: TREMOR
     Route: 048
     Dates: start: 20120201
  2. DEPAKOTE [Suspect]
     Indication: MYOCLONUS
  3. PHENOBARBITAL TAB [Concomitant]
     Indication: TREMOR
     Route: 048

REACTIONS (2)
  - MYOCLONUS [None]
  - TREMOR [None]
